FAERS Safety Report 5068136-2 (Version None)
Quarter: 2006Q3

REPORT INFORMATION
  Report Type: 
  Country: None (occurrence: None)
  Receive Date: 20060802
  Receipt Date: 20060721
  Transmission Date: 20061208
  Serious: Yes (Hospitalization)
  Sender: FDA-Public Use
  Company Number: FR-BRISTOL-MYERS SQUIBB COMPANY-13455340

PATIENT
  Age: 76 Year
  Sex: Female

DRUGS (4)
  1. GLUCOVANCE [Suspect]
     Dates: end: 20060625
  2. LASILIX [Concomitant]
  3. MONO-TILDIEM [Concomitant]
  4. SINGULAIR [Concomitant]

REACTIONS (1)
  - METABOLIC ACIDOSIS [None]
